FAERS Safety Report 23596732 (Version 5)
Quarter: 2024Q3

REPORT INFORMATION
  Report Type: Spontaneous
  Country: IN (occurrence: IN)
  Receive Date: 20240305
  Receipt Date: 20240709
  Transmission Date: 20241016
  Serious: Yes (Other)
  Sender: PFIZER
  Company Number: IN-PFIZER INC-PV202300112139

PATIENT
  Age: 45 Year
  Sex: Male

DRUGS (5)
  1. DACOMITINIB [Suspect]
     Active Substance: DACOMITINIB
     Dosage: 30 MG, 1X/DAY(OD)
     Route: 048
     Dates: start: 20230528
  2. DACOMITINIB [Suspect]
     Active Substance: DACOMITINIB
     Dosage: 30 MG
     Route: 048
     Dates: start: 202306
  3. DACOMITINIB [Suspect]
     Active Substance: DACOMITINIB
     Dosage: 45 MG
     Route: 048
     Dates: start: 202306
  4. METOCLOPRAMIDE HYDROCHLORIDE [Concomitant]
     Active Substance: METOCLOPRAMIDE HYDROCHLORIDE
     Dosage: 1 TAB SOS ( MAX 3TABS/DAY)
  5. DENOSUMAB [Concomitant]
     Active Substance: DENOSUMAB
     Dosage: UNK
     Dates: start: 202403

REACTIONS (8)
  - Carcinoembryonic antigen increased [Unknown]
  - Rhinorrhoea [Unknown]
  - Weight increased [Unknown]
  - Laboratory test abnormal [Unknown]
  - Blood pressure increased [Unknown]
  - Heart rate increased [Unknown]
  - Weight decreased [Unknown]
  - Paronychia [Unknown]
